FAERS Safety Report 25816928 (Version 1)
Quarter: 2025Q3

REPORT INFORMATION
  Report Type: Report from Study
  Country: CN (occurrence: CN)
  Receive Date: 20250918
  Receipt Date: 20250918
  Transmission Date: 20251020
  Serious: Yes (Death)
  Sender: ROCHE
  Company Number: CN-ROCHE-10000389362

PATIENT
  Age: 37 Year
  Sex: Male

DRUGS (2)
  1. ATEZOLIZUMAB [Suspect]
     Active Substance: ATEZOLIZUMAB
     Indication: Hepatic cancer
     Dosage: FROM STRENGTH: 1200MG/20ML
     Route: 042
     Dates: start: 20250603, end: 20250813
  2. BEVACIZUMAB [Suspect]
     Active Substance: BEVACIZUMAB
     Indication: Hepatic cancer
     Dosage: FROM STRENGTH: 100 MG/VIAL
     Route: 042
     Dates: start: 20230923, end: 20250813

REACTIONS (1)
  - Death [Fatal]
